FAERS Safety Report 6432325-2 (Version None)
Quarter: 2009Q4

REPORT INFORMATION
  Report Type: 
  Country: None (occurrence: None)
  Receive Date: 20091105
  Receipt Date: 20091022
  Transmission Date: 20100525
  Serious: Yes (Other)
  Sender: FDA-Public Use
  Company Number: 1000009368

PATIENT
  Sex: Female

DRUGS (7)
  1. MEMANTINE HCL [Suspect]
     Dosage: 10 MG (10 MG,1 IN 1 D),ORAL
     Route: 048
     Dates: start: 20090729
  2. MEMANTINE HCL [Suspect]
     Dosage: 5 MG (5 MG,1 IN 1 D),ORAL
     Route: 048
     Dates: start: 20090722, end: 20090728
  3. ASCAL [Concomitant]
  4. OXAZEPAM [Concomitant]
  5. SEROQUEL [Concomitant]
  6. OMEPRAZOLE [Concomitant]
  7. MOVICOLON [Concomitant]

REACTIONS (4)
  - ELECTROENCEPHALOGRAM ABNORMAL [None]
  - EPILEPSY [None]
  - MUSCLE RIGIDITY [None]
  - MYOCLONUS [None]
